FAERS Safety Report 10266906 (Version 2)
Quarter: 2014Q3

REPORT INFORMATION
  Report Type: Spontaneous
  Country: US (occurrence: US)
  Receive Date: 20140630
  Receipt Date: 20140724
  Transmission Date: 20150326
  Serious: No
  Sender: FDA-Public Use
  Company Number: US-BIOGENIDEC-2014BI060199

PATIENT
  Age: 57 Year
  Sex: Female
  Weight: 69 kg

DRUGS (28)
  1. HYDROCODONE [Concomitant]
     Active Substance: HYDROCODONE
  2. PROAIR HFA [Concomitant]
     Active Substance: ALBUTEROL SULFATE
  3. ATORVASTATIN [Concomitant]
     Active Substance: ATORVASTATIN
  4. ALPRAZOLAM. [Concomitant]
     Active Substance: ALPRAZOLAM
  5. DIAZEPAM. [Concomitant]
     Active Substance: DIAZEPAM
  6. LEXAPRO [Concomitant]
     Active Substance: ESCITALOPRAM OXALATE
  7. NASONEX [Concomitant]
     Active Substance: MOMETASONE FUROATE
  8. OXYCONTIN [Concomitant]
     Active Substance: OXYCODONE HYDROCHLORIDE
  9. RITALIN [Concomitant]
     Active Substance: METHYLPHENIDATE HYDROCHLORIDE
  10. PREDNISONE. [Concomitant]
     Active Substance: PREDNISONE
     Indication: PRODUCT USED FOR UNKNOWN INDICATION
     Dates: start: 20140601
  11. METHYLPHENIDATE [Concomitant]
     Active Substance: METHYLPHENIDATE
  12. FISH OIL [Concomitant]
     Active Substance: FISH OIL
  13. PRIMIDONE AVPAK [Concomitant]
  14. SYMBICORT [Concomitant]
     Active Substance: BUDESONIDE\FORMOTEROL FUMARATE DIHYDRATE
  15. AMPYRA [Concomitant]
     Active Substance: DALFAMPRIDINE
     Indication: GAIT DISTURBANCE
     Route: 048
     Dates: start: 2012, end: 2014
  16. ALLEGRA-D [Concomitant]
     Active Substance: FEXOFENADINE\PSEUDOEPHEDRINE
  17. CELEBREX [Concomitant]
     Active Substance: CELECOXIB
  18. SOY ISOFLAVONE [Concomitant]
  19. TYSABRI [Suspect]
     Active Substance: NATALIZUMAB
     Indication: MULTIPLE SCLEROSIS
     Route: 042
     Dates: start: 2012
  20. GABAPENTIN. [Concomitant]
     Active Substance: GABAPENTIN
  21. FLUOXETINE [Concomitant]
     Active Substance: FLUOXETINE\FLUOXETINE HYDROCHLORIDE
  22. OMEPRAZOLE. [Concomitant]
     Active Substance: OMEPRAZOLE
  23. OXYCODONE [Concomitant]
     Active Substance: OXYCODONE
  24. BLACK COHOSH [Concomitant]
     Active Substance: BLACK COHOSH
  25. ALBUTEROL. [Concomitant]
     Active Substance: ALBUTEROL
  26. CALCIUM D [Concomitant]
     Active Substance: CALCIUM\VITAMIN D
  27. GILENYA [Concomitant]
     Active Substance: FINGOLIMOD HYDROCHLORIDE
  28. HYDROCHLOROTHIAZIDE. [Concomitant]
     Active Substance: HYDROCHLOROTHIAZIDE

REACTIONS (13)
  - Weight increased [Unknown]
  - Paraesthesia [Unknown]
  - Visual impairment [Unknown]
  - Hypoaesthesia [Not Recovered/Not Resolved]
  - Gait disturbance [Unknown]
  - Mobility decreased [Not Recovered/Not Resolved]
  - Headache [Unknown]
  - Asthenia [Unknown]
  - Memory impairment [Unknown]
  - Fluid retention [Unknown]
  - Back pain [Unknown]
  - Dry mouth [Unknown]
  - Abasia [Unknown]

NARRATIVE: CASE EVENT DATE: 2012
